FAERS Safety Report 15966842 (Version 2)
Quarter: 2019Q1

REPORT INFORMATION
  Report Type: Spontaneous
  Country: FR (occurrence: FR)
  Receive Date: 20190215
  Receipt Date: 20190227
  Transmission Date: 20190418
  Serious: Yes (Death, Other)
  Sender: FDA-Public Use
  Company Number: FR-PFIZER INC-2016045233

PATIENT
  Age: 37 Year

DRUGS (3)
  1. DACTINOMYCIN [Suspect]
     Active Substance: DACTINOMYCIN
     Indication: TESTIS CANCER
     Dosage: 0.5 MG, DAILY, ON DAYS 1 TO 5 AND 11 TO 15
  2. CYCLOPHOSPHAMIDE. [Suspect]
     Active Substance: CYCLOPHOSPHAMIDE
     Indication: TESTIS CANCER
     Dosage: 200 MG, EVERY 2 DAYS, ON DAYS 1 TO 19
  3. METHOTREXATE SODIUM. [Suspect]
     Active Substance: METHOTREXATE SODIUM
     Indication: TESTIS CANCER
     Dosage: 5 MG, DAILY, ON DAYS 1 TO 20
     Route: 048

REACTIONS (2)
  - Acute leukaemia [Unknown]
  - Sepsis [Fatal]
